FAERS Safety Report 10581154 (Version 1)
Quarter: 2014Q4

REPORT INFORMATION
  Report Type: Spontaneous
  Country: IT (occurrence: None)
  Receive Date: 20141110
  Receipt Date: 20141110
  Transmission Date: 20150529
  Serious: Yes (Hospitalization)
  Sender: FDA-Public Use
  Company Number: IT2014GSK012874

PATIENT
  Age: 44 Year
  Sex: Male

DRUGS (2)
  1. XANAX [Suspect]
     Active Substance: ALPRAZOLAM
     Indication: INTENTIONAL SELF-INJURY
     Dosage: 20 ML, SINGLE
     Dates: start: 20141016, end: 20141016
  2. EUTIMIL [Suspect]
     Active Substance: PAROXETINE HYDROCHLORIDE
     Indication: INTENTIONAL SELF-INJURY
     Dosage: 3 UNK, SINGLE, ORAL
     Route: 048
     Dates: start: 20141016, end: 20141016

REACTIONS (4)
  - Bradyphrenia [None]
  - Drug abuse [None]
  - Intentional self-injury [None]
  - Bradykinesia [None]

NARRATIVE: CASE EVENT DATE: 20141016
